FAERS Safety Report 11184902 (Version 1)
Quarter: 2015Q2

REPORT INFORMATION
  Report Type: Spontaneous
  Country: US (occurrence: US)
  Receive Date: 20150612
  Receipt Date: 20150612
  Transmission Date: 20150821
  Serious: Yes (Hospitalization, Other)
  Sender: FDA-Public Use
  Company Number: US-SA-2015SA080830

PATIENT
  Sex: Male

DRUGS (1)
  1. HECTOROL [Suspect]
     Active Substance: DOXERCALCIFEROL
     Route: 048

REACTIONS (2)
  - Aphagia [Unknown]
  - Hospitalisation [Unknown]
